FAERS Safety Report 10045621 (Version 2)
Quarter: 2014Q2

REPORT INFORMATION
  Report Type: Spontaneous
  Country: SG (occurrence: SG)
  Receive Date: 20140328
  Receipt Date: 20140409
  Transmission Date: 20141212
  Serious: Yes (Life-Threatening, Disabling, Other)
  Sender: FDA-Public Use
  Company Number: SG-009507513-1403SGP012724

PATIENT
  Age: 67 Year
  Sex: Male
  Weight: 60 kg

DRUGS (6)
  1. JANUMET [Suspect]
     Indication: TYPE 2 DIABETES MELLITUS
     Dosage: 50/850, BID
     Route: 048
     Dates: start: 20081210, end: 20131001
  2. CONCOR [Concomitant]
     Indication: MYOCARDIAL ISCHAEMIA
     Dosage: 5 MG, QD
     Route: 048
     Dates: start: 20081210
  3. PLAVIX [Concomitant]
     Indication: MYOCARDIAL ISCHAEMIA
     Dosage: 75 MG, QD
     Route: 048
     Dates: start: 20081210
  4. COVERSYL (PERINDOPRIL ERBUMINE) [Concomitant]
     Indication: MYOCARDIAL ISCHAEMIA
     Dosage: 10 MG, QD
     Route: 048
     Dates: start: 20111122
  5. COVERSYL (PERINDOPRIL ERBUMINE) [Concomitant]
     Indication: HYPERTONIA
  6. NOVOMIX [Concomitant]
     Indication: DIABETES MELLITUS
     Dosage: 30 UNITS, QD
     Route: 058
     Dates: start: 20131003

REACTIONS (1)
  - Pancreatic carcinoma [Not Recovered/Not Resolved]
